FAERS Safety Report 8595537-8 (Version None)
Quarter: 2012Q3

REPORT INFORMATION
  Report Type: 
  Country: None (occurrence: None)
  Receive Date: 20120815
  Receipt Date: 20120813
  Transmission Date: 20120928
  Serious: Yes (Other)
  Sender: FDA-Public Use
  Company Number: DE-BAYER-2012-082833

PATIENT
  Age: 88 Year
  Sex: Female

DRUGS (1)
  1. AVELOX [Suspect]
     Dosage: UNK

REACTIONS (6)
  - MENTAL DISORDER [None]
  - CIRCADIAN RHYTHM SLEEP DISORDER [None]
  - DELIRIUM [None]
  - INFECTIVE GLOSSITIS [None]
  - BLOOD PRESSURE ABNORMAL [None]
  - HALLUCINATION [None]
